FAERS Safety Report 6690999-5 (Version None)
Quarter: 2010Q2

REPORT INFORMATION
  Report Type: 
  Country: None (occurrence: None)
  Receive Date: 20100421
  Receipt Date: 20100414
  Transmission Date: 20101027
  Serious: No
  Sender: FDA-Public Use
  Company Number: US-GILEAD-2009-0025358

PATIENT
  Age: 38 Year
  Sex: Female

DRUGS (7)
  1. VIREAD [Suspect]
     Indication: HIV INFECTION
     Route: 048
  2. EPZICOM [Concomitant]
     Indication: HIV INFECTION
     Route: 048
     Dates: end: 20090806
  3. REYATAZ [Concomitant]
     Indication: HIV INFECTION
     Route: 048
     Dates: end: 20090806
  4. NORVIR [Concomitant]
     Indication: HIV INFECTION
     Route: 048
     Dates: end: 20090806
  5. TRIZIVIR [Concomitant]
     Indication: HIV INFECTION
     Route: 048
     Dates: start: 20090807
  6. VIRACEPT [Concomitant]
     Indication: HIV INFECTION
     Route: 048
     Dates: start: 20090807
  7. ZIDOVUDINE [Concomitant]
     Indication: PROPHYLAXIS AGAINST HIV INFECTION
     Route: 042
     Dates: start: 20100303, end: 20100303

REACTIONS (1)
  - PREGNANCY [None]
